FAERS Safety Report 12708202 (Version 4)
Quarter: 2021Q1

REPORT INFORMATION
  Report Type: Spontaneous
  Country: JP (occurrence: JP)
  Receive Date: 20160901
  Receipt Date: 20210225
  Transmission Date: 20210419
  Serious: Yes (Hospitalization)
  Sender: FDA-Public Use
  Company Number: JP-UNITED THERAPEUTICS-UNT-2015-015665

PATIENT
  Age: 47 Year
  Sex: Female
  Weight: 51.8 kg

DRUGS (25)
  1. LOPEMIN [LOPERAMIDE HYDROCHLORIDE] [Concomitant]
     Active Substance: LOPERAMIDE HYDROCHLORIDE
     Indication: DIARRHOEA
     Dosage: UNK
     Route: 048
     Dates: end: 2018
  2. CYMBALTA [Concomitant]
     Active Substance: DULOXETINE HYDROCHLORIDE
     Indication: PRODUCT USED FOR UNKNOWN INDICATION
     Dosage: UNK, AS NECESSARY
     Route: 048
     Dates: start: 20181031
  3. CORTRIL [Concomitant]
     Active Substance: HYDROCORTISONE
     Indication: PRODUCT USED FOR UNKNOWN INDICATION
     Dosage: UNK
     Route: 048
  4. REMODULIN [Suspect]
     Active Substance: TREPROSTINIL
     Dosage: 0.226 ?G/KG, CONTINUING
     Route: 058
     Dates: start: 20151204, end: 20151205
  5. REMODULIN [Suspect]
     Active Substance: TREPROSTINIL
     Dosage: UNK, CONTINUING
     Route: 058
     Dates: start: 201810
  6. BIOFERMIN R [Concomitant]
     Active Substance: DIETARY SUPPLEMENT\PROBIOTICS
     Indication: DIARRHOEA
     Dosage: UNK
     Route: 048
  7. FERROMIA [Concomitant]
     Active Substance: SODIUM FERROUS CITRATE
     Indication: IRON DEFICIENCY ANAEMIA
     Dosage: UNK
     Route: 048
     Dates: end: 2018
  8. HEPARINOID [Concomitant]
     Active Substance: CHONDROITIN SULFATE (BOVINE)
     Indication: PROPHYLAXIS
     Dosage: UNK
     Route: 061
  9. ZOLPIDEM TARTRATE. [Concomitant]
     Active Substance: ZOLPIDEM TARTRATE
     Indication: PROPHYLAXIS
     Dosage: UNK
     Route: 048
     Dates: end: 2018
  10. FEBURIC [Concomitant]
     Active Substance: FEBUXOSTAT
     Indication: PROPHYLAXIS
     Dosage: UNK
     Route: 048
  11. LYRICA [Concomitant]
     Active Substance: PREGABALIN
     Indication: PROPHYLAXIS
     Dosage: UNK
     Route: 048
  12. SLOW?K [Concomitant]
     Active Substance: POTASSIUM CHLORIDE
     Indication: HYPOKALAEMIA
     Dosage: UNK
     Route: 048
  13. FAMOTIDINE OD ME [Concomitant]
     Indication: PROPHYLAXIS
     Dosage: UNK
     Route: 048
  14. ADEMPAS [Concomitant]
     Active Substance: RIOCIGUAT
     Indication: PULMONARY ARTERIAL HYPERTENSION
     Dosage: UNK
     Route: 048
     Dates: start: 20160722
  15. REMODULIN [Suspect]
     Active Substance: TREPROSTINIL
     Indication: PULMONARY ARTERIAL HYPERTENSION
     Dosage: UNK, CONTINUING
     Route: 058
     Dates: start: 20151201
  16. GASTER [Concomitant]
     Active Substance: FAMOTIDINE
     Indication: GASTRITIS PROPHYLAXIS
     Dosage: UNK
     Route: 048
  17. REMODULIN [Suspect]
     Active Substance: TREPROSTINIL
     Dosage: 0.201 ?G/KG, CONTINUING
     Route: 058
     Dates: start: 201512
  18. TRACLEER [Concomitant]
     Active Substance: BOSENTAN
     Indication: PULMONARY ARTERIAL HYPERTENSION
     Dosage: UNK
     Route: 048
     Dates: end: 20160727
  19. FUROSEMIDE. [Concomitant]
     Active Substance: FUROSEMIDE
     Indication: PRODUCT USED FOR UNKNOWN INDICATION
     Dosage: UNK
     Route: 048
  20. URSO [Concomitant]
     Active Substance: URSODIOL
     Indication: PRODUCT USED FOR UNKNOWN INDICATION
     Dosage: UNK
     Route: 048
  21. REMODULIN [Suspect]
     Active Substance: TREPROSTINIL
     Dosage: 0.095 UNK, CONTINUING
     Route: 058
     Dates: start: 201810, end: 20190730
  22. FLOLAN [Concomitant]
     Active Substance: EPOPROSTENOL SODIUM
     Indication: PULMONARY ARTERIAL HYPERTENSION
     Dosage: UNK
     Route: 042
     Dates: start: 201105, end: 201512
  23. DEPAS [ETIZOLAM] [Concomitant]
     Active Substance: ETIZOLAM
     Indication: PROPHYLAXIS
     Dosage: UNK
     Route: 048
     Dates: end: 2018
  24. KEISHIBUKURYOGAN [Concomitant]
     Active Substance: HERBALS
     Indication: PROPHYLAXIS
     Dosage: UNK
     Route: 048
     Dates: end: 2018
  25. VOLIBRIS [Concomitant]
     Active Substance: AMBRISENTAN
     Indication: PULMONARY ARTERIAL HYPERTENSION
     Dosage: UNK
     Route: 048
     Dates: start: 20170921

REACTIONS (6)
  - Headache [Recovered/Resolved]
  - Infusion site swelling [Recovering/Resolving]
  - Needle issue [Recovering/Resolving]
  - Injection site pain [Recovering/Resolving]
  - Pain [Recovering/Resolving]
  - Erythema [Recovering/Resolving]

NARRATIVE: CASE EVENT DATE: 20151203
